FAERS Safety Report 13863743 (Version 5)
Quarter: 2019Q3

REPORT INFORMATION
  Report Type: Report from Study
  Country: CA (occurrence: CA)
  Receive Date: 20170814
  Receipt Date: 20190827
  Transmission Date: 20191004
  Serious: Yes (Other)
  Sender: FDA-Public Use
  Company Number: PHHY2013CA043407

PATIENT
  Age: 40 Year
  Sex: Male

DRUGS (9)
  1. SANDOSTATIN LAR DEPOT [Suspect]
     Active Substance: OCTREOTIDE ACETATE
     Dosage: 30 MG, Q 2 WKS -ALT WITH 20 MG Q 2 W
     Route: 030
     Dates: start: 20140616
  2. SANDOSTATIN LAR DEPOT [Suspect]
     Active Substance: OCTREOTIDE ACETATE
     Dosage: 60 MG, BIW
     Route: 030
     Dates: start: 20160421
  3. SANDOSTATIN LAR DEPOT [Suspect]
     Active Substance: OCTREOTIDE ACETATE
     Dosage: 30 MG, QMO (ONCE A MONTH)
     Route: 030
     Dates: start: 20140203
  4. SANDOSTATIN LAR DEPOT [Suspect]
     Active Substance: OCTREOTIDE ACETATE
     Dosage: UNK
     Route: 030
     Dates: start: 20170614
  5. ESCITALOPRAM [Concomitant]
     Active Substance: ESCITALOPRAM OXALATE
     Indication: PRODUCT USED FOR UNKNOWN INDICATION
     Dosage: 5 MG, UNK
     Route: 048
     Dates: start: 2017
  6. SANDOSTATIN LAR DEPOT [Suspect]
     Active Substance: OCTREOTIDE ACETATE
     Indication: NEUROENDOCRINE TUMOUR
     Dosage: 30 MG, QMO
     Route: 030
     Dates: start: 20130419
  7. SANDOSTATIN LAR DEPOT [Suspect]
     Active Substance: OCTREOTIDE ACETATE
     Dosage: 30/20 MG Q 2 WKS ALTERNATIVELY
     Route: 030
     Dates: start: 20131104
  8. SANDOSTATIN LAR DEPOT [Suspect]
     Active Substance: OCTREOTIDE ACETATE
     Dosage: 30 MG, BIW
     Route: 030
     Dates: start: 20140806
  9. SANDOSTATIN LAR DEPOT [Suspect]
     Active Substance: OCTREOTIDE ACETATE
     Dosage: 30 MG, BIW
     Route: 030

REACTIONS (24)
  - Carcinoid crisis [Unknown]
  - Flushing [Not Recovered/Not Resolved]
  - Migraine [Unknown]
  - Metastases to liver [Unknown]
  - Small intestinal obstruction [Unknown]
  - Joint range of motion decreased [Unknown]
  - Erythema [Unknown]
  - Malignant neoplasm progression [Unknown]
  - Diarrhoea [Not Recovered/Not Resolved]
  - Dyspnoea [Unknown]
  - Abdominal pain [Unknown]
  - Intestinal obstruction [Unknown]
  - Sleep disorder [Unknown]
  - Inappropriate schedule of product administration [Unknown]
  - Nausea [Unknown]
  - Depressed level of consciousness [Unknown]
  - Carcinoid tumour [Unknown]
  - Constipation [Unknown]
  - Road traffic accident [Unknown]
  - Musculoskeletal pain [Unknown]
  - Nephrolithiasis [Unknown]
  - Dizziness [Unknown]
  - Blood pressure increased [Unknown]
  - Cold sweat [Unknown]

NARRATIVE: CASE EVENT DATE: 201407
